FAERS Safety Report 8241178-1 (Version None)
Quarter: 2012Q1

REPORT INFORMATION
  Report Type: 
  Country: None (occurrence: None)
  Receive Date: 20120328
  Receipt Date: 20120321
  Transmission Date: 20120608
  Serious: Yes (Hospitalization)
  Sender: FDA-Public Use
  Company Number: US-ASTRAZENECA-2010SE52409

PATIENT
  Age: 58 Year
  Sex: Female

DRUGS (2)
  1. PULMICORT [Suspect]
     Route: 055
  2. NEXIUM [Suspect]
     Route: 048

REACTIONS (3)
  - MULTIPLE SCLEROSIS [None]
  - DRUG DISPENSING ERROR [None]
  - MALAISE [None]
